FAERS Safety Report 5169395-8 (Version None)
Quarter: 2006Q4

REPORT INFORMATION
  Report Type: 
  Country: None (occurrence: None)
  Receive Date: 20061201
  Receipt Date: 20061115
  Transmission Date: 20070319
  Serious: Yes (Hospitalization)
  Sender: FDA-Public Use
  Company Number: 231716

PATIENT
  Age: 63 Year
  Sex: Male
  Weight: 73.6 kg

DRUGS (7)
  1. AVASTIN [Suspect]
     Indication: NON-SMALL CELL LUNG CANCER
     Dosage: 15 MG/KG, Q3W, INTRAVENOUS
     Route: 042
     Dates: start: 20050728, end: 20061010
  2. PREMETREXED (PREMETREXED) [Suspect]
     Indication: NON-SMALL CELL LUNG CANCER
     Dosage: 500 MG/M2, Q3W, INTRAVENOUS
     Route: 042
     Dates: start: 20050728, end: 20061010
  3. CARBOPLATIN [Suspect]
     Indication: NON-SMALL CELL LUNG CANCER
     Dosage: 6 AUC, Q3W, INTRAVENOUS
     Route: 042
     Dates: start: 20050728, end: 20051108
  4. NEXIUM [Concomitant]
  5. ADVAIR DISKUS 100/50 [Concomitant]
  6. LEXAPRO [Concomitant]
  7. AMBIEN [Concomitant]

REACTIONS (2)
  - METASTASES TO GASTROINTESTINAL TRACT [None]
  - SMALL INTESTINAL OBSTRUCTION [None]
